FAERS Safety Report 8253431-6 (Version None)
Quarter: 2012Q2

REPORT INFORMATION
  Report Type: 
  Country: None (occurrence: None)
  Receive Date: 20120402
  Receipt Date: 20120323
  Transmission Date: 20120825
  Serious: Yes (Death)
  Sender: FDA-Public Use
  Company Number: DE-BAXTER-2012BAX001076

PATIENT
  Sex: 0

DRUGS (7)
  1. VINCRISTINE [Suspect]
  2. DOXORUBICIN HCL [Suspect]
  3. CYCLOPHOSPHAMIDE [Suspect]
  4. PREDNISONE TAB [Suspect]
  5. BLEOMYCIN SULFATE [Suspect]
  6. ETOPOSIDE [Suspect]
  7. PROCARBAZINE HYDROCHLORIDE [Suspect]

REACTIONS (1)
  - TOXICITY TO VARIOUS AGENTS [None]
